FAERS Safety Report 5838595-3 (Version None)
Quarter: 2008Q3

REPORT INFORMATION
  Report Type: 
  Country: None (occurrence: None)
  Receive Date: 20080808
  Receipt Date: 20080523
  Transmission Date: 20090109
  Serious: No
  Sender: FDA-Public Use
  Company Number: A0728102A

PATIENT
  Age: 5 Year
  Sex: Male
  Weight: 28.2 kg

DRUGS (1)
  1. ALTABAX [Suspect]
     Indication: RASH
     Route: 061
     Dates: start: 20080501, end: 20080501

REACTIONS (1)
  - SCREAMING [None]
